FAERS Safety Report 6104700-7 (Version None)
Quarter: 2009Q1

REPORT INFORMATION
  Report Type: 
  Country: None (occurrence: None)
  Receive Date: 20090302
  Receipt Date: 20090217
  Transmission Date: 20090719
  Serious: Yes (Other)
  Sender: FDA-Public Use
  Company Number: 231773K09USA

PATIENT
  Age: 43 Year
  Sex: Female

DRUGS (2)
  1. REBIF [Suspect]
     Indication: MULTIPLE SCLEROSIS
     Dosage: 44 MCG, 3 IN 1 WEEKS, SUBCUTANEOUS
     Route: 058
     Dates: start: 20040519
  2. STEROID (CORTICOSTEROID NOS) [Concomitant]

REACTIONS (6)
  - BACK PAIN [None]
  - BALANCE DISORDER [None]
  - CONDITION AGGRAVATED [None]
  - FALL [None]
  - HEPATITIS C [None]
  - MULTIPLE SCLEROSIS [None]
